FAERS Safety Report 6112359-8 (Version None)
Quarter: 2009Q1

REPORT INFORMATION
  Report Type: 
  Country: None (occurrence: None)
  Receive Date: 20090311
  Receipt Date: 20090311
  Transmission Date: 20090719
  Serious: Yes (Other)
  Sender: FDA-Public Use
  Company Number: None

PATIENT
  Sex: Female
  Weight: 65.7716 kg

DRUGS (2)
  1. CLONAZEPAM [Suspect]
     Indication: MAJOR DEPRESSION
     Dosage: 1 MG ONCE TID PO ATTEMPTED 4-06
     Route: 048
     Dates: start: 20060401
  2. CLONAZEPAM [Suspect]
     Indication: PANIC DISORDER
     Dosage: 1 MG ONCE TID PO ATTEMPTED 4-06
     Route: 048
     Dates: start: 20060401

REACTIONS (2)
  - DRUG EFFECT DECREASED [None]
  - THERAPEUTIC RESPONSE UNEXPECTED WITH DRUG SUBSTITUTION [None]
